FAERS Safety Report 9795290 (Version 2)
Quarter: 2014Q1

REPORT INFORMATION
  Report Type: Spontaneous
  Country: US (occurrence: US)
  Receive Date: 20140103
  Receipt Date: 20140128
  Transmission Date: 20141002
  Serious: No
  Sender: FDA-Public Use
  Company Number: US-009507513-1401USA000196

PATIENT
  Sex: Female

DRUGS (1)
  1. FOLLISTIM AQ CARTRIDGE [Suspect]
     Dosage: 225 IU, QD (INJECTION, CATRIDGE AND PEN)
     Dates: start: 20131230

REACTIONS (3)
  - Incorrect dose administered [Unknown]
  - Product quality issue [Unknown]
  - No adverse event [Unknown]
